FAERS Safety Report 10993912 (Version 1)
Quarter: 2015Q2

REPORT INFORMATION
  Report Type: Spontaneous
  Country: US (occurrence: None)
  Receive Date: 20150406
  Receipt Date: 20150406
  Transmission Date: 20150821
  Serious: Yes (Disabling)
  Sender: FDA-Public Use
  Company Number: None

PATIENT
  Age: 57 Year
  Sex: Female
  Weight: 67.13 kg

DRUGS (10)
  1. Q-VAR INHALER [Concomitant]
  2. RESTASIS [Concomitant]
     Active Substance: CYCLOSPORINE
  3. MOXIFLOXACIN HCL [Suspect]
     Active Substance: MOXIFLOXACIN
     Indication: SINUSITIS
     Dosage: 1 TABLET
     Route: 048
     Dates: start: 20141212, end: 20141216
  4. AMYLODIPINE BESYLATE [Concomitant]
  5. CULTRELLE [Concomitant]
  6. NASONEX [Concomitant]
     Active Substance: MOMETASONE FUROATE
  7. OMEGA 3 ETHYL ESTERS [Concomitant]
  8. PRAVASTATIN [Concomitant]
     Active Substance: PRAVASTATIN\PRAVASTATIN SODIUM
  9. MULTI VITAMIN [Concomitant]
     Active Substance: VITAMINS
  10. BABY ASPIRIN [Concomitant]
     Active Substance: ASPIRIN

REACTIONS (9)
  - Abdominal pain [None]
  - Alopecia [None]
  - Headache [None]
  - Feeding disorder [None]
  - Fatigue [None]
  - Tearfulness [None]
  - Chest pain [None]
  - Weight decreased [None]
  - Feeling abnormal [None]

NARRATIVE: CASE EVENT DATE: 20141212
